FAERS Safety Report 7496969-1 (Version None)
Quarter: 2011Q2

REPORT INFORMATION
  Report Type: 
  Country: None (occurrence: None)
  Receive Date: 20110523
  Receipt Date: 20110504
  Transmission Date: 20111010
  Serious: No
  Sender: FDA-Public Use
  Company Number: US-B.I. PHARMACEUTICALS,INC./RIDGEFIELD-2011-BP-08269BP

PATIENT
  Age: 79 Year
  Sex: Male
  Weight: 88.9 kg

DRUGS (6)
  1. CELEBREX [Concomitant]
     Dosage: 200 MG
  2. PRAVASTATIN [Concomitant]
     Dosage: 40 MG
  3. FLOMAX [Concomitant]
     Dosage: 0.4 MG
  4. ASPIRIN [Concomitant]
     Dosage: 81 MG
  5. NIASPAN [Concomitant]
     Dosage: 2000 MG
  6. PRADAXA [Suspect]
     Indication: ATRIAL FIBRILLATION
     Dosage: 300 MG
     Dates: start: 20101213, end: 20110217

REACTIONS (2)
  - BLOOD BLISTER [None]
  - PLATELET COUNT DECREASED [None]
